FAERS Safety Report 8835645 (Version 2)
Quarter: 2012Q4

REPORT INFORMATION
  Report Type: 
  Country: JP (occurrence: JP)
  Receive Date: 20121011
  Receipt Date: 20121105
  Transmission Date: 20130627
  Serious: Yes (Hospitalization, Other)
  Sender: FDA-Public Use
  Company Number: PHHY2012JP079689

PATIENT
  Age: 83 Year
  Sex: Female

DRUGS (6)
  1. EXFORGE [Suspect]
     Indication: HYPERTENSION
     Dosage: 1 DF, daily
     Route: 048
  2. TANATRIL [Suspect]
     Indication: HYPERTENSION
     Dosage: 1 DF, daily in the morning
     Route: 048
     Dates: start: 20110315, end: 20120903
  3. FLUITRAN [Suspect]
     Indication: HYPERTENSION
     Dosage: 0.5 DF, daily in the morning
     Route: 048
     Dates: start: 20110315, end: 20120903
  4. ALDACTONE-A [Suspect]
     Indication: HYPERTENSION
     Dosage: 2 DF, daily
     Route: 048
     Dates: start: 20110531, end: 20120903
  5. ZYLORIC [Concomitant]
     Indication: HYPERTENSION
     Dosage: 1 DF, daily in the morning
     Route: 048
  6. AGRAMATE JELLY [Concomitant]
     Dates: start: 20120906, end: 20120911

REACTIONS (5)
  - Pneumonia [Recovered/Resolved]
  - Dehydration [Recovered/Resolved]
  - Renal impairment [Unknown]
  - Hyperkalaemia [Recovered/Resolved]
  - Eating disorder [Unknown]
